FAERS Safety Report 6985473-2 (Version None)
Quarter: 2010Q3

REPORT INFORMATION
  Report Type: 
  Country: None (occurrence: None)
  Receive Date: 20100915
  Receipt Date: 20100908
  Transmission Date: 20110219
  Serious: Yes (Hospitalization)
  Sender: FDA-Public Use
  Company Number: A0881128A

PATIENT
  Age: 80 Year
  Sex: Female

DRUGS (1)
  1. AVANDIA [Suspect]
     Dosage: 8MG PER DAY
     Route: 048
     Dates: start: 20041101, end: 20080611

REACTIONS (3)
  - ANGINA PECTORIS [None]
  - BACK PAIN [None]
  - CARDIAC FAILURE CONGESTIVE [None]
